FAERS Safety Report 4706181-4 (Version None)
Quarter: 2005Q2

REPORT INFORMATION
  Report Type: 
  Country: None (occurrence: None)
  Receive Date: 20050629
  Receipt Date: 20050516
  Transmission Date: 20051028
  Serious: No
  Sender: FDA-Public Use
  Company Number: 05P-163-0300644-00

PATIENT
  Age: 21 Year
  Sex: Female

DRUGS (4)
  1. HUMIRA [Suspect]
     Indication: RHEUMATOID ARTHRITIS
     Dosage: 40 MG, 1 IN 2 WK, SUBCUTANEOUS
     Route: 058
     Dates: start: 20030801, end: 20041001
  2. PREDNISONE TAB [Concomitant]
  3. ROFECOXIB [Concomitant]
  4. EXTRASTEP [Concomitant]

REACTIONS (4)
  - DYSPEPSIA [None]
  - LUPUS-LIKE SYNDROME [None]
  - MALAISE [None]
  - PYREXIA [None]
